FAERS Safety Report 7797098-X (Version None)
Quarter: 2011Q4

REPORT INFORMATION
  Report Type: 
  Country: None (occurrence: None)
  Receive Date: 20111003
  Receipt Date: 20110921
  Transmission Date: 20120403
  Serious: Yes (Hospitalization)
  Sender: FDA-Public Use
  Company Number: 2011MA014453

PATIENT
  Age: 86 Year
  Sex: Female

DRUGS (10)
  1. FOSAMAX [Suspect]
     Dosage: 70 MG;QW;PO
     Route: 048
     Dates: start: 20080810, end: 20110803
  2. TRIOBE [Concomitant]
  3. SIMVASTATIN [Suspect]
     Dosage: 40 MG; PO
     Route: 048
     Dates: start: 20080814, end: 20110802
  4. BISOPROLOL FUMARATE [Suspect]
     Dosage: 5 MG; PO
     Route: 048
     Dates: start: 20080814, end: 20110803
  5. CALCEVITA [Concomitant]
  6. LEVOTHYROXINE SODIUM [Concomitant]
  7. FURADANTIN [Suspect]
     Dosage: 100 MG; PO
     Route: 048
     Dates: start: 20110802, end: 20110803
  8. NIFEREX (POLYSACCHARIDE-IRON COMPLEX) [Suspect]
     Dosage: 100 MG; PO
     Route: 048
     Dates: start: 20110802, end: 20110805
  9. MIANSERIN (MIANSERIN) [Suspect]
     Dosage: 60 MG; PO
     Route: 048
     Dates: start: 20080810, end: 20110802
  10. LITHIONIT [Concomitant]

REACTIONS (4)
  - BEDRIDDEN [None]
  - GENERAL PHYSICAL HEALTH DETERIORATION [None]
  - MENTAL DISORDER [None]
  - EATING DISORDER [None]
